FAERS Safety Report 7323198-4 (Version None)
Quarter: 2011Q1

REPORT INFORMATION
  Report Type: 
  Country: None (occurrence: None)
  Receive Date: 20110301
  Receipt Date: 20110222
  Transmission Date: 20110831
  Serious: Yes (Other)
  Sender: FDA-Public Use
  Company Number: DE-GENZYME-THYM-1002017

PATIENT
  Age: 21 Year
  Sex: Female

DRUGS (8)
  1. METHOTREXATE [Concomitant]
     Indication: PROPHYLAXIS AGAINST GRAFT VERSUS HOST DISEASE
     Dosage: UNK
  2. FLUDARA [Concomitant]
     Indication: BONE MARROW CONDITIONING REGIMEN
  3. CYCLOSPORINE [Concomitant]
     Indication: PROPHYLAXIS AGAINST GRAFT VERSUS HOST DISEASE
     Dosage: 2 MG/KG, UNK
  4. CYTARABINE [Concomitant]
     Indication: BONE MARROW CONDITIONING REGIMEN
  5. THYMOGLOBULIN [Suspect]
     Indication: BONE MARROW CONDITIONING REGIMEN
     Dosage: 7.5 MG/KG, UNK
     Route: 042
  6. BUSULFAN [Concomitant]
     Indication: BONE MARROW CONDITIONING REGIMEN
     Dosage: 3.2 MG/KG, UNK
  7. IDARUBICIN [Concomitant]
     Indication: BONE MARROW CONDITIONING REGIMEN
  8. CYCLOPHOSPHAMIDE [Concomitant]
     Indication: BONE MARROW CONDITIONING REGIMEN
     Dosage: 120 MG/KG, UNK

REACTIONS (9)
  - LEUKOPENIA [None]
  - ACUTE MYELOID LEUKAEMIA RECURRENT [None]
  - PERITONITIS [None]
  - ABDOMINAL INFECTION [None]
  - GASTRIC ILEUS [None]
  - STEM CELL TRANSPLANT [None]
  - ACUTE GRAFT VERSUS HOST DISEASE [None]
  - CHRONIC GRAFT VERSUS HOST DISEASE [None]
  - THROMBOCYTOPENIA [None]
